FAERS Safety Report 9224185 (Version 1)
Quarter: 2013Q2

REPORT INFORMATION
  Report Type: Spontaneous
  Country: US (occurrence: None)
  Receive Date: 20130409
  Receipt Date: 20130409
  Transmission Date: 20140414
  Serious: Yes (Disabling)
  Sender: FDA-Public Use
  Company Number: None

PATIENT
  Age: 63 Year
  Sex: Female
  Weight: 66.23 kg

DRUGS (1)
  1. LEVOFLOXACIN [Suspect]
     Indication: PNEUMONIA
     Dosage: ONE  750MG  TAB  DAILY  PO
     Route: 048
     Dates: start: 20130316, end: 20130320

REACTIONS (4)
  - Gait disturbance [None]
  - Anger [None]
  - Arthralgia [None]
  - Tendon pain [None]
